FAERS Safety Report 15593562 (Version 13)
Quarter: 2020Q3

REPORT INFORMATION
  Report Type: Report from Study
  Country: US (occurrence: US)
  Receive Date: 20181107
  Receipt Date: 20200819
  Transmission Date: 20201102
  Serious: Yes (Hospitalization)
  Sender: FDA-Public Use
  Company Number: US-ACTELION-A-NJ2018-181514

PATIENT
  Age: 49 Year
  Sex: Male
  Weight: 122.45 kg

DRUGS (6)
  1. VELETRI [Suspect]
     Active Substance: EPOPROSTENOL
     Dosage: 65 NG/KG, PER MIN
     Route: 042
  2. VELETRI [Suspect]
     Active Substance: EPOPROSTENOL
     Dosage: 17 NG/KG, PER MIN
     Route: 042
  3. TADALAFIL. [Concomitant]
     Active Substance: TADALAFIL
  4. VELETRI [Suspect]
     Active Substance: EPOPROSTENOL
     Indication: PULMONARY ARTERIAL HYPERTENSION
     Dosage: 60 NG/KG, PER MIN
     Route: 042
  5. SILDENAFIL CITRATE. [Concomitant]
     Active Substance: SILDENAFIL CITRATE
  6. VELETRI [Suspect]
     Active Substance: EPOPROSTENOL
     Dosage: 22 NG/KG, PER MIN
     Route: 042

REACTIONS (23)
  - Viral infection [Unknown]
  - Pain in jaw [Unknown]
  - Vomiting [Unknown]
  - Dyspnoea [Unknown]
  - Pallor [Unknown]
  - Device failure [Unknown]
  - Pain in extremity [Unknown]
  - Catheter site thrombosis [Unknown]
  - Arthralgia [Unknown]
  - Adverse event [Unknown]
  - Dermatitis contact [Unknown]
  - Illness [Unknown]
  - Feeling hot [Unknown]
  - Diarrhoea [Unknown]
  - Feeling cold [Unknown]
  - Device issue [Unknown]
  - Device alarm issue [Unknown]
  - Nausea [Unknown]
  - Weight decreased [Unknown]
  - Device occlusion [Unknown]
  - Flushing [Unknown]
  - Neuropathy peripheral [Unknown]
  - Burning sensation [Unknown]

NARRATIVE: CASE EVENT DATE: 20200809
